FAERS Safety Report 7562942-8 (Version None)
Quarter: 2011Q2

REPORT INFORMATION
  Report Type: 
  Country: None (occurrence: None)
  Receive Date: 20110622
  Receipt Date: 20110607
  Transmission Date: 20111010
  Serious: Yes (Hospitalization)
  Sender: FDA-Public Use
  Company Number: US-ROCHE-784375

PATIENT
  Sex: Female

DRUGS (4)
  1. CARBOPLATIN [Suspect]
     Dosage: DOSE: 6 AUC, ON DAY 1
     Route: 042
     Dates: start: 20100901
  2. PACLITAXEL [Suspect]
     Dosage: OVER 1 HR ON DAYS 1, 8 AND 15
     Route: 042
     Dates: start: 20100901
  3. BEVACIZUMAB [Suspect]
     Dosage: PHASE A, OVER 30-90 MIN ON DAY 1, BEGINING WITH CYCLE 2.
     Route: 042
     Dates: start: 20100922
  4. BEVACIZUMAB [Suspect]
     Dosage: PHASE B. OVER 30-90 MIN ON DAY 1.
     Route: 042

REACTIONS (3)
  - ATRIAL FIBRILLATION [None]
  - DIARRHOEA [None]
  - COLITIS [None]
